FAERS Safety Report 7023414-2 (Version None)
Quarter: 2010Q3

REPORT INFORMATION
  Report Type: 
  Country: None (occurrence: None)
  Receive Date: 20100930
  Receipt Date: 20100922
  Transmission Date: 20110219
  Serious: Yes (Other)
  Sender: FDA-Public Use
  Company Number: US-AMGEN-QUU437354

PATIENT
  Sex: Female
  Weight: 97.8 kg

DRUGS (11)
  1. NPLATE [Suspect]
     Indication: IDIOPATHIC THROMBOCYTOPENIC PURPURA
     Route: 058
     Dates: start: 20100812
  2. DECADRON [Concomitant]
     Dates: start: 20100626, end: 20100909
  3. BACTRIM [Concomitant]
  4. FUROSEMIDE [Concomitant]
  5. PLATELETS [Concomitant]
  6. LIPITOR [Concomitant]
  7. LISINOPRIL [Concomitant]
  8. METOPROLOL TARTRATE [Concomitant]
  9. METRONIDAZOLE [Concomitant]
  10. COLACE [Concomitant]
  11. LASIX [Concomitant]

REACTIONS (6)
  - DEEP VEIN THROMBOSIS [None]
  - ECCHYMOSIS [None]
  - FATIGUE [None]
  - LYMPHOCYTOSIS [None]
  - VASCULAR ANOMALY [None]
  - WEIGHT INCREASED [None]
